FAERS Safety Report 7641067-7 (Version None)
Quarter: 2011Q3

REPORT INFORMATION
  Report Type: 
  Country: None (occurrence: None)
  Receive Date: 20110728
  Receipt Date: 20110721
  Transmission Date: 20111222
  Serious: Yes (Hospitalization)
  Sender: FDA-Public Use
  Company Number: AU-SANOFI-AVENTIS-2011SA041813

PATIENT
  Age: 69 Year
  Sex: Male
  Weight: 77.9 kg

DRUGS (6)
  1. OXALIPLATIN [Suspect]
     Indication: RECTAL CANCER
     Route: 042
     Dates: start: 20110204, end: 20110204
  2. DEXAMETHASONE [Concomitant]
     Route: 065
     Dates: start: 20110131, end: 20110312
  3. TROPISETRON [Concomitant]
     Route: 065
     Dates: start: 20110131, end: 20110312
  4. THERAPEUTIC RADIOPHARMACEUTICALS [Suspect]
     Indication: RECTAL CANCER
     Dosage: 50.4 GY
     Dates: start: 20110204, end: 20110309
  5. OXALIPLATIN [Suspect]
     Route: 042
     Dates: start: 20110602, end: 20110602
  6. XELODA [Suspect]
     Indication: RECTAL CANCER
     Route: 048
     Dates: start: 20110204, end: 20110215

REACTIONS (1)
  - GALLBLADDER OBSTRUCTION [None]
